FAERS Safety Report 25835480 (Version 1)
Quarter: 2025Q3

REPORT INFORMATION
  Report Type: Spontaneous
  Country: CN (occurrence: CN)
  Receive Date: 20250923
  Receipt Date: 20250923
  Transmission Date: 20251021
  Serious: Yes (Other)
  Sender: ACCORD
  Company Number: CN-MLMSERVICE-20250905-PI632427-00033-1

PATIENT
  Age: 76 Year
  Sex: Female

DRUGS (3)
  1. CLOPIDOGREL [Interacting]
     Active Substance: CLOPIDOGREL BISULFATE
     Indication: Antiplatelet therapy
  2. ASPIRIN [Interacting]
     Active Substance: ASPIRIN
     Indication: Antiplatelet therapy
  3. LECANEMAB [Interacting]
     Active Substance: LECANEMAB
     Indication: Dementia Alzheimer^s type

REACTIONS (2)
  - Brain stem haemorrhage [Recovering/Resolving]
  - Potentiating drug interaction [Unknown]
